FAERS Safety Report 19429573 (Version 1)
Quarter: 2021Q2

REPORT INFORMATION
  Report Type: Spontaneous
  Country: US (occurrence: US)
  Receive Date: 20210617
  Receipt Date: 20210617
  Transmission Date: 20210717
  Serious: Yes (Hospitalization, Other)
  Sender: FDA-Public Use
  Company Number: US-009507513-2106USA002406

PATIENT
  Age: 52 Year
  Sex: Female
  Weight: 96.15 kg

DRUGS (4)
  1. NESINA [Suspect]
     Active Substance: ALOGLIPTIN BENZOATE
     Dosage: UNK, UNKNOWN
     Dates: start: 20210606
  2. INSULIN [Suspect]
     Active Substance: INSULIN NOS
     Dosage: UNK, UNKNOWN
     Dates: start: 20210605
  3. STEGLATRO [Suspect]
     Active Substance: ERTUGLIFLOZIN PIDOLATE
     Indication: TYPE 2 DIABETES MELLITUS
     Dosage: 15 MG Q DAY
     Route: 048
     Dates: start: 20210524, end: 20210606
  4. GLIPIZIDE. [Suspect]
     Active Substance: GLIPIZIDE
     Dosage: UNK, UNKNOWN
     Dates: start: 20210606

REACTIONS (1)
  - Diabetic ketoacidosis [Recovering/Resolving]

NARRATIVE: CASE EVENT DATE: 20210606
